FAERS Safety Report 25800173 (Version 2)
Quarter: 2025Q3

REPORT INFORMATION
  Report Type: Report from Study
  Country: US (occurrence: US)
  Receive Date: 20250915
  Receipt Date: 20250918
  Transmission Date: 20251021
  Serious: No
  Sender: ASTELLAS
  Company Number: US-ASTELLAS-2025-AER-049974

PATIENT
  Age: 86 Year
  Sex: Male

DRUGS (2)
  1. ENZALUTAMIDE [Suspect]
     Active Substance: ENZALUTAMIDE
     Indication: Product used for unknown indication
     Route: 065
  2. GLUTAMINE [Suspect]
     Active Substance: GLUTAMINE
     Indication: Product used for unknown indication
     Route: 065

REACTIONS (7)
  - Muscular weakness [Not Recovered/Not Resolved]
  - Lethargy [Not Recovered/Not Resolved]
  - Condition aggravated [Not Recovered/Not Resolved]
  - Laziness [Not Recovered/Not Resolved]
  - Balance disorder [Not Recovered/Not Resolved]
  - Myalgia [Unknown]
  - Dizziness [Unknown]
